FAERS Safety Report 10616395 (Version 1)
Quarter: 2014Q4

REPORT INFORMATION
  Report Type: Spontaneous
  Country: FR (occurrence: FR)
  Receive Date: 20141201
  Receipt Date: 20141201
  Transmission Date: 20150529
  Serious: Yes (Hospitalization)
  Sender: FDA-Public Use
  Company Number: FR-SA-2014SA160020

PATIENT
  Age: 60 Year
  Sex: Female

DRUGS (1)
  1. LASILIX [Suspect]
     Active Substance: FUROSEMIDE
     Dosage: STRENGTH: 500 MG
     Route: 048

REACTIONS (4)
  - Respiratory disorder [Recovering/Resolving]
  - Oedema [Recovering/Resolving]
  - Pain [Recovering/Resolving]
  - Oedema peripheral [Recovering/Resolving]

NARRATIVE: CASE EVENT DATE: 20141114
